FAERS Safety Report 9507884 (Version 1)
Quarter: 2013Q3

REPORT INFORMATION
  Report Type: Spontaneous
  Country: FR (occurrence: FR)
  Receive Date: 20130909
  Receipt Date: 20130909
  Transmission Date: 20140515
  Serious: Yes (Death)
  Sender: FDA-Public Use
  Company Number: FR-PFIZER INC-2013253965

PATIENT
  Age: 83 Year
  Sex: Male

DRUGS (13)
  1. TYGACIL [Suspect]
     Dosage: 100 MG/DAY
     Route: 042
     Dates: start: 20080825, end: 20080904
  2. CEFTRIAXONE [Interacting]
     Indication: EVIDENCE BASED TREATMENT
     Dosage: 2 G/DAY
     Route: 042
     Dates: start: 20080820, end: 20080821
  3. CEFTRIAXONE [Interacting]
     Dosage: 1 G/DAY
     Route: 042
     Dates: start: 20080822, end: 20080822
  4. TAVANIC [Interacting]
     Indication: EVIDENCE BASED TREATMENT
     Dosage: 1 G/DAY
     Route: 048
     Dates: start: 20080823, end: 20080824
  5. PREVISCAN [Interacting]
     Indication: ATRIAL FIBRILLATION
     Dosage: 0.75 DF/DAY
     Route: 048
     Dates: end: 20080826
  6. PREVISCAN [Interacting]
     Dosage: 0.5 DF/DAY
     Route: 048
     Dates: start: 20080901
  7. CONTRAMAL [Interacting]
     Dosage: 100 TO 200 MG PER DAY
     Route: 048
     Dates: start: 20080820, end: 20080905
  8. JOSIR [Concomitant]
     Indication: PROSTATIC ADENOMA
  9. HYTACAND [Concomitant]
     Indication: HYPERTENSION
  10. NOOTROPYL [Concomitant]
     Dosage: 1 DF, 3X/DAY
  11. OMIX [Concomitant]
     Dosage: 0.4 MG/DAY
     Dates: start: 20080820, end: 20080905
  12. DOBUTAMINE [Concomitant]
     Indication: ACUTE PULMONARY OEDEMA
     Dosage: LOW DOSES
  13. ATARAX [Concomitant]
     Dosage: UNK
     Dates: start: 20080825, end: 20080904

REACTIONS (4)
  - Drug interaction [Fatal]
  - Overdose [Fatal]
  - Cerebral haematoma [Fatal]
  - International normalised ratio increased [Fatal]
